FAERS Safety Report 5703903-0 (Version None)
Quarter: 2008Q2

REPORT INFORMATION
  Report Type: 
  Country: None (occurrence: None)
  Receive Date: 20080414
  Receipt Date: 20080409
  Transmission Date: 20081010
  Serious: Yes (Other)
  Sender: FDA-Public Use
  Company Number: US-BAYER-200811445NA

PATIENT
  Age: 44 Year
  Sex: Female
  Weight: 82 kg

DRUGS (4)
  1. LEUKINE [Suspect]
     Indication: COLONY STIMULATING FACTOR PROPHYLAXIS
     Dosage: UNIT DOSE: 500 ?G
     Route: 058
     Dates: start: 20080116, end: 20080116
  2. SODIUM CHLORIDE [Concomitant]
     Route: 042
     Dates: start: 20080116, end: 20080116
  3. ADRIAMYCIN PFS [Concomitant]
     Dates: start: 20080114
  4. CYTOXAN [Concomitant]
     Dates: start: 20080114

REACTIONS (3)
  - FEELING ABNORMAL [None]
  - HOT FLUSH [None]
  - LOSS OF CONSCIOUSNESS [None]
